FAERS Safety Report 5117642-0 (Version None)
Quarter: 2006Q3

REPORT INFORMATION
  Report Type: 
  Country: None (occurrence: None)
  Receive Date: 20060926
  Receipt Date: 20060907
  Transmission Date: 20061208
  Serious: Yes (Death)
  Sender: FDA-Public Use
  Company Number: CA200607005108

PATIENT
  Age: 48 Year
  Sex: Male

DRUGS (1)
  1. XIGRIS [Suspect]

REACTIONS (1)
  - BRAIN DEATH [None]
